FAERS Safety Report 19274386 (Version 1)
Quarter: 2021Q2

REPORT INFORMATION
  Report Type: Spontaneous
  Country: US (occurrence: US)
  Receive Date: 20210519
  Receipt Date: 20210519
  Transmission Date: 20210717
  Serious: Yes (Hospitalization)
  Sender: FDA-Public Use
  Company Number: None

PATIENT
  Age: 35 Year
  Sex: Male
  Weight: 49 kg

DRUGS (11)
  1. STELARA [Concomitant]
     Active Substance: USTEKINUMAB
  2. CALCIUM CARBONATE. [Concomitant]
     Active Substance: CALCIUM CARBONATE
  3. CYANOCOBALAMIN. [Concomitant]
     Active Substance: CYANOCOBALAMIN
  4. ACETAMINOPHEN. [Concomitant]
     Active Substance: ACETAMINOPHEN
  5. OSMOLITE [Concomitant]
  6. PREDNISONE. [Concomitant]
     Active Substance: PREDNISONE
  7. PROMETHAZINE [Concomitant]
     Active Substance: PROMETHAZINE HYDROCHLORIDE
  8. PEDIATRIC MULTIVIT?IRON?MIN [Concomitant]
  9. STELARA [Suspect]
     Active Substance: USTEKINUMAB
  10. FERROUS SULFATE. [Concomitant]
     Active Substance: FERROUS SULFATE
  11. TRAMADOL. [Concomitant]
     Active Substance: TRAMADOL

REACTIONS (4)
  - Fall [None]
  - Flank pain [None]
  - Syncope [None]
  - Nephrolithiasis [None]

NARRATIVE: CASE EVENT DATE: 20191213
